FAERS Safety Report 4360389-9 (Version None)
Quarter: 2004Q2

REPORT INFORMATION
  Report Type: 
  Country: None (occurrence: None)
  Receive Date: 20040517
  Receipt Date: 20040513
  Transmission Date: 20050107
  Serious: Yes (Life-Threatening, Other)
  Sender: FDA-Public Use
  Company Number: 7962

PATIENT
  Sex: Male
  Weight: 90 kg

DRUGS (3)
  1. ATRACURIUM BESYLATE [Suspect]
     Indication: ANAESTHESIA
  2. PROPOFOL [Suspect]
     Indication: ANAESTHESIA
  3. FENTANYL [Suspect]
     Indication: ANAESTHESIA

REACTIONS (4)
  - ANAESTHETIC COMPLICATION [None]
  - ANAPHYLACTIC REACTION [None]
  - ELECTROCARDIOGRAM ST SEGMENT DEPRESSION [None]
  - VENTRICULAR EXTRASYSTOLES [None]
